FAERS Safety Report 20838135 (Version 1)
Quarter: 2022Q2

REPORT INFORMATION
  Report Type: Spontaneous
  Country: US (occurrence: None)
  Receive Date: 20220516
  Receipt Date: 20220516
  Transmission Date: 20220721
  Serious: No
  Sender: FDA-Public Use
  Company Number: None

PATIENT
  Age: 62 Year
  Sex: Male
  Weight: 90 kg

DRUGS (8)
  1. BEBTELOVIMAB [Suspect]
     Active Substance: BEBTELOVIMAB
     Indication: COVID-19
     Dosage: OTHER STRENGTH : 1 TIME INFUSION;?OTHER QUANTITY : 1 INJECTION(S);?OTHER FREQUENCY : 1 TIME INFUSION
     Route: 042
     Dates: start: 20220512, end: 20220512
  2. IMBRUVICA [Concomitant]
  3. CONCERTA [Concomitant]
     Active Substance: METHYLPHENIDATE HYDROCHLORIDE
  4. TRIAMTERENE AND HYDROCHLOROTHIAZIDE [Concomitant]
     Active Substance: HYDROCHLOROTHIAZIDE\TRIAMTERENE
  5. LISINOPRIL [Concomitant]
  6. LISINOPRIL [Concomitant]
  7. WIXELA [Concomitant]
  8. C-PAP [Concomitant]

REACTIONS (4)
  - Chills [None]
  - Tremor [None]
  - Pyrexia [None]
  - Infusion related reaction [None]

NARRATIVE: CASE EVENT DATE: 20220512
